FAERS Safety Report 9961106 (Version 1)
Quarter: 2014Q1

REPORT INFORMATION
  Report Type: Report from Study
  Country: US (occurrence: US)
  Receive Date: 20140305
  Receipt Date: 20140305
  Transmission Date: 20141002
  Serious: No
  Sender: FDA-Public Use
  Company Number: US-ABBVIE-13P-163-1108977-00

PATIENT
  Sex: Female
  Weight: 81.72 kg

DRUGS (18)
  1. HUMIRA [Suspect]
     Indication: PSORIASIS
     Dates: end: 201301
  2. HUMIRA [Suspect]
     Indication: PSORIATIC ARTHROPATHY
     Dates: start: 201304
  3. SIMPONI [Suspect]
     Indication: PSORIATIC ARTHROPATHY
     Dates: start: 201301, end: 201303
  4. METHOTREXATE [Concomitant]
     Indication: PSORIATIC ARTHROPATHY
  5. SYNTHROID [Concomitant]
     Indication: THYROIDECTOMY
  6. PROZAC [Concomitant]
     Indication: DEPRESSION
  7. ALTACE [Concomitant]
     Indication: HYPERTENSION
  8. FOLIC ACID [Concomitant]
     Indication: PRODUCT USED FOR UNKNOWN INDICATION
  9. ARTHRO 7 [Concomitant]
     Indication: OSTEOARTHRITIS
  10. MAGNESIUM [Concomitant]
     Indication: MINERAL SUPPLEMENTATION
  11. VITAMIN D3 [Concomitant]
     Indication: VITAMIN SUPPLEMENTATION
  12. MULTIVITAMIN [Concomitant]
     Indication: VITAMIN SUPPLEMENTATION
  13. CLONAZEPAM [Concomitant]
     Indication: ADVERSE DRUG REACTION
  14. LIPITOR [Concomitant]
     Indication: BLOOD CHOLESTEROL INCREASED
  15. PANTOPRAZOLE [Concomitant]
     Indication: GASTROOESOPHAGEAL REFLUX DISEASE
  16. NEURONTIN [Concomitant]
     Indication: HEADACHE
  17. MELATONIN [Concomitant]
     Indication: HEADACHE
  18. ZOMIG [Concomitant]
     Indication: MIGRAINE

REACTIONS (7)
  - Injection site bruising [Not Recovered/Not Resolved]
  - Dactylitis [Not Recovered/Not Resolved]
  - Injection site pain [Not Recovered/Not Resolved]
  - Injection site haemorrhage [Not Recovered/Not Resolved]
  - Local swelling [Not Recovered/Not Resolved]
  - Drug ineffective [Not Recovered/Not Resolved]
  - Drug ineffective [Not Recovered/Not Resolved]
